FAERS Safety Report 8008898-5 (Version None)
Quarter: 2011Q4

REPORT INFORMATION
  Report Type: 
  Country: None (occurrence: None)
  Receive Date: 20111227
  Receipt Date: 20111221
  Transmission Date: 20120403
  Serious: Yes (Life-Threatening)
  Sender: FDA-Public Use
  Company Number: JP-ASTRAZENECA-2011SE30694

PATIENT
  Age: 75 Year
  Sex: Male

DRUGS (3)
  1. CASODEX [Suspect]
     Indication: PROSTATE CANCER
     Route: 048
     Dates: start: 20101015, end: 20110519
  2. ZOLADEX [Suspect]
     Indication: PROSTATE CANCER
     Route: 058
  3. CASODEX [Suspect]
     Route: 048
     Dates: start: 20110601

REACTIONS (1)
  - PNEUMONIA BACTERIAL [None]
